FAERS Safety Report 8556659-0 (Version None)
Quarter: 2012Q3

REPORT INFORMATION
  Report Type: 
  Country: None (occurrence: None)
  Receive Date: 20120801
  Receipt Date: 20120727
  Transmission Date: 20120928
  Serious: Yes (Other)
  Sender: FDA-Public Use
  Company Number: IT-BRISTOL-MYERS SQUIBB COMPANY-16461915

PATIENT
  Age: 59 Year
  Sex: Female

DRUGS (4)
  1. ERBITUX [Suspect]
     Indication: RECTAL CANCER
     Dosage: REINTRODUCED ON 12-MAR-2012
     Route: 042
     Dates: start: 20100819
  2. IRINOTECAN HYDROCHLORIDE [Suspect]
     Indication: RECTAL CANCER
     Dosage: REINTRODUCED ON 12-MAR-2012
     Route: 042
     Dates: start: 20100819
  3. FLUOROURACIL [Suspect]
     Indication: RECTAL CANCER
     Dosage: REINTRODUCED ON 12-MAR-2012
     Route: 042
     Dates: start: 20100819
  4. LOSARTAN POTASSIUM [Concomitant]

REACTIONS (2)
  - NAIL TOXICITY [None]
  - NEUTROPENIA [None]
